FAERS Safety Report 4460637-0 (Version None)
Quarter: 2004Q3

REPORT INFORMATION
  Report Type: 
  Country: None (occurrence: None)
  Receive Date: 20040923
  Receipt Date: 20010915
  Transmission Date: 20050211
  Serious: Yes (Death, Hospitalization)
  Sender: FDA-Public Use
  Company Number: 2004EU001395

PATIENT
  Age: 63 Year
  Sex: Male
  Weight: 77 kg

DRUGS (4)
  1. FK506(TACROLIMUS) CAPSULE [Suspect]
     Indication: RENAL TRANSPLANT
     Dosage: 8.00  MG,  D, ORAL
     Route: 048
     Dates: start: 20040512, end: 20040702
  2. CELLCEPT [Suspect]
     Dosage: 500.00 MG, BID, ORAL
     Route: 048
     Dates: start: 20040511, end: 20040702
  3. PREDNISONE [Concomitant]
  4. SOLU-MEDROL [Concomitant]

REACTIONS (15)
  - ANXIETY [None]
  - CANDIDA SEPSIS [None]
  - DISORIENTATION [None]
  - DRUG INEFFECTIVE [None]
  - DRUG RESISTANCE [None]
  - GENERAL PHYSICAL HEALTH DETERIORATION [None]
  - HAEMODIALYSIS [None]
  - HALLUCINATION [None]
  - KIDNEY TRANSPLANT REJECTION [None]
  - LOSS OF CONSCIOUSNESS [None]
  - MULTI-ORGAN FAILURE [None]
  - PERITONITIS [None]
  - PSYCHOTIC DISORDER [None]
  - RESPIRATORY FAILURE [None]
  - SHOCK [None]
